FAERS Safety Report 8370812-0 (Version None)
Quarter: 2012Q2

REPORT INFORMATION
  Report Type: 
  Country: None (occurrence: None)
  Receive Date: 20120518
  Receipt Date: 20110206
  Transmission Date: 20120825
  Serious: No
  Sender: FDA-Public Use
  Company Number: US-ASTRAZENECA-2011SE09028

PATIENT
  Sex: Female

DRUGS (2)
  1. PRILOSEC OTC [Suspect]
     Route: 048
     Dates: start: 20110130
  2. FLU SHOT [Suspect]
     Route: 065

REACTIONS (6)
  - PAIN [None]
  - NAUSEA [None]
  - CHILLS [None]
  - FEELING ABNORMAL [None]
  - HEADACHE [None]
  - PYREXIA [None]
